FAERS Safety Report 10387691 (Version 1)
Quarter: 2014Q3

REPORT INFORMATION
  Report Type: Spontaneous
  Country: US (occurrence: None)
  Receive Date: 20140814
  Receipt Date: 20140814
  Transmission Date: 20150326
  Serious: Yes (Disabling)
  Sender: FDA-Public Use
  Company Number: None

PATIENT
  Age: 51 Year
  Sex: Male
  Weight: 90.72 kg

DRUGS (1)
  1. CIPRODEX [Suspect]
     Active Substance: CIPROFLOXACIN HYDROCHLORIDE\DEXAMETHASONE
     Indication: INFECTION
     Dosage: ONCE DAILY
     Dates: start: 20140811, end: 20140812

REACTIONS (4)
  - Pain [None]
  - Swelling face [None]
  - VIIth nerve paralysis [None]
  - Haemorrhoids [None]

NARRATIVE: CASE EVENT DATE: 20140124
